FAERS Safety Report 14861013 (Version 4)
Quarter: 2018Q3

REPORT INFORMATION
  Report Type: Report from Study
  Country: AT (occurrence: AT)
  Receive Date: 20180508
  Receipt Date: 20180904
  Transmission Date: 20181010
  Serious: Yes (Hospitalization)
  Sender: FDA-Public Use
  Company Number: AT-ROCHE-2113999

PATIENT
  Age: 72 Year
  Sex: Female
  Weight: 65.9 kg

DRUGS (74)
  1. PACLITAXEL. [Suspect]
     Active Substance: PACLITAXEL
     Indication: MALIGNANT PERITONEAL NEOPLASM
     Dosage: DATE OF MOST RECENT DOSE (292.13 MG) OF PACLITAXEL PRIORTO AE ONSET: 17/APR/2018
     Route: 042
     Dates: start: 20180116
  2. LOVENOX [Concomitant]
     Active Substance: ENOXAPARIN SODIUM
     Indication: THROMBOSIS PROPHYLAXIS
     Route: 065
     Dates: start: 20180116, end: 20180224
  3. NEULASTA [Concomitant]
     Active Substance: PEGFILGRASTIM
     Dosage: GCSF
     Route: 065
     Dates: start: 20180118, end: 20180118
  4. NACL [Concomitant]
     Active Substance: SODIUM CHLORIDE
     Dosage: HYDRATION
     Route: 065
     Dates: start: 20180115, end: 20180115
  5. NACL [Concomitant]
     Active Substance: SODIUM CHLORIDE
     Route: 065
     Dates: start: 20180129, end: 20180129
  6. NACL [Concomitant]
     Active Substance: SODIUM CHLORIDE
     Route: 065
     Dates: start: 20180312, end: 20180312
  7. FENISTIL (DIMETINDENE MALEATE) [Concomitant]
     Route: 065
     Dates: start: 20180327, end: 20180327
  8. ULSAL [Concomitant]
     Active Substance: RANITIDINE HYDROCHLORIDE
     Route: 065
     Dates: start: 20180327, end: 20180327
  9. FORTECORTIN [Concomitant]
     Active Substance: DEXAMETHASONE
     Route: 048
     Dates: start: 20180206, end: 20180210
  10. CARBOPLATIN. [Suspect]
     Active Substance: CARBOPLATIN
     Indication: MALIGNANT PERITONEAL NEOPLASM
     Dosage: TO ACHIEVE A TARGET AREA UNDER THE CURVE (AUC) OF 6 MILLIGRAMS PER MILLILITER*MINUTE (MG/ML*MIN)?DAT
     Route: 042
     Dates: start: 20180116
  11. INDAPAMID [Concomitant]
     Active Substance: INDAPAMIDE
     Indication: HYPERTENSION
     Route: 065
     Dates: start: 2013
  12. AKYNZEO [Concomitant]
     Active Substance: NETUPITANT\PALONOSETRON HYDROCHLORIDE
     Indication: NAUSEA
     Route: 065
     Dates: start: 20180116, end: 20180116
  13. LOVENOX [Concomitant]
     Active Substance: ENOXAPARIN SODIUM
     Indication: EMBOLISM
     Route: 065
     Dates: start: 20180225, end: 20180417
  14. LOVENOX [Concomitant]
     Active Substance: ENOXAPARIN SODIUM
     Route: 065
     Dates: start: 20180418
  15. ULSAL [Concomitant]
     Active Substance: RANITIDINE HYDROCHLORIDE
     Route: 065
     Dates: start: 20180305, end: 20180305
  16. FORTECORTIN [Concomitant]
     Active Substance: DEXAMETHASONE
     Route: 048
     Dates: start: 20180116, end: 20180120
  17. FORTECORTIN [Concomitant]
     Active Substance: DEXAMETHASONE
     Route: 048
     Dates: start: 20180509, end: 20180512
  18. ARANESP [Concomitant]
     Active Substance: DARBEPOETIN ALFA
     Route: 065
     Dates: start: 20180327, end: 20180327
  19. PASPERTIN (AUSTRIA) [Concomitant]
     Route: 065
     Dates: start: 20180327, end: 20180402
  20. KCL?RETARD [Concomitant]
     Active Substance: POTASSIUM CHLORIDE
     Indication: HYPOKALAEMIA
     Route: 065
     Dates: start: 20180508
  21. BLINDED ATEZOLIZUMAB [Suspect]
     Active Substance: ATEZOLIZUMAB
     Indication: MALIGNANT PERITONEAL NEOPLASM
     Dosage: DATE OF MOST RECENT DOSE OF BLINDE ATEZOLIZUMAB PRIOR TO AE ONSET: 06/FEB/2018
     Route: 042
     Dates: start: 20180116
  22. NEULASTA [Concomitant]
     Active Substance: PEGFILGRASTIM
     Route: 065
     Dates: start: 20180510, end: 20180510
  23. MONURIL [Concomitant]
     Active Substance: FOSFOMYCIN SODIUM
     Indication: CYSTITIS
     Route: 065
     Dates: start: 20180205, end: 20180205
  24. DIBONDRIN [Concomitant]
     Active Substance: DIPHENHYDRAMINE HYDROCHLORIDE
     Indication: PREMEDICATION
     Dosage: SUPPORTIVE FOR CHEMOTHERAPY
     Route: 065
     Dates: start: 20180116, end: 20180116
  25. DIBONDRIN [Concomitant]
     Active Substance: DIPHENHYDRAMINE HYDROCHLORIDE
     Route: 065
     Dates: start: 20180206, end: 20180206
  26. DIBONDRIN [Concomitant]
     Active Substance: DIPHENHYDRAMINE HYDROCHLORIDE
     Route: 065
     Dates: start: 20180327, end: 20180327
  27. ULSAL [Concomitant]
     Active Substance: RANITIDINE HYDROCHLORIDE
     Route: 065
     Dates: start: 20180417, end: 20180417
  28. FORTECORTIN [Concomitant]
     Active Substance: DEXAMETHASONE
     Route: 042
     Dates: start: 20180417, end: 20180417
  29. ZARZIO [Concomitant]
     Active Substance: FILGRASTIM
     Indication: WHITE BLOOD CELL COUNT DECREASED
     Route: 065
     Dates: start: 20180216, end: 20180218
  30. ELOZELL SPEZIAL [Concomitant]
     Indication: FATIGUE
     Route: 065
     Dates: start: 20180507, end: 20180507
  31. FERMED (SACCHARATED IRON OXIDE) [Concomitant]
     Route: 065
     Dates: start: 20180215, end: 20180215
  32. FENISTIL (DIMETINDENE MALEATE) [Concomitant]
     Route: 065
     Dates: start: 20180417, end: 20180417
  33. DIBONDRIN [Concomitant]
     Active Substance: DIPHENHYDRAMINE HYDROCHLORIDE
     Route: 065
     Dates: start: 20180417, end: 20180417
  34. DIBONDRIN [Concomitant]
     Active Substance: DIPHENHYDRAMINE HYDROCHLORIDE
     Route: 065
     Dates: start: 20180508, end: 20180508
  35. EMEND [Concomitant]
     Active Substance: APREPITANT
     Route: 065
     Dates: start: 20180305, end: 20180307
  36. BEVACIZUMAB. [Suspect]
     Active Substance: BEVACIZUMAB
     Indication: MALIGNANT PERITONEAL NEOPLASM
     Dosage: DATE OF MOST RECENT DOSE OF BEVACIZUMAB PRIOR TO AE ONSET: 06/FEB/2018
     Route: 042
     Dates: start: 20180206
  37. AKYNZEO [Concomitant]
     Active Substance: NETUPITANT\PALONOSETRON HYDROCHLORIDE
     Route: 065
     Dates: start: 20180508, end: 20180508
  38. NORVASC [Concomitant]
     Active Substance: AMLODIPINE BESYLATE
     Indication: HYPERTENSION
     Route: 065
     Dates: start: 20180116, end: 20180116
  39. FERMED (SACCHARATED IRON OXIDE) [Concomitant]
     Indication: ANAEMIA
     Route: 065
     Dates: start: 20180207, end: 20180207
  40. ULSAL [Concomitant]
     Active Substance: RANITIDINE HYDROCHLORIDE
     Indication: PREMEDICATION
     Dosage: SUPPORTIVE FOR CHEMOTHERAPY
     Route: 065
     Dates: start: 20180206, end: 20180206
  41. ULSAL [Concomitant]
     Active Substance: RANITIDINE HYDROCHLORIDE
     Route: 065
     Dates: start: 20180508, end: 20180508
  42. FORTECORTIN [Concomitant]
     Active Substance: DEXAMETHASONE
     Dosage: SUPPORTIVE FOR CHEMOTHERAPY
     Route: 042
     Dates: start: 20180206, end: 20180206
  43. FORTECORTIN [Concomitant]
     Active Substance: DEXAMETHASONE
     Route: 048
     Dates: start: 20180418, end: 20180420
  44. AMOXICILLIN/CLAVULANIC ACID [Concomitant]
     Active Substance: AMOXICILLIN\CLAVULANIC ACID
     Indication: CYSTITIS
     Route: 065
     Dates: start: 20180215, end: 20180220
  45. PASPERTIN (AUSTRIA) [Concomitant]
     Route: 065
     Dates: start: 20180417, end: 20180417
  46. EMEND [Concomitant]
     Active Substance: APREPITANT
     Route: 065
     Dates: start: 20180417, end: 20180419
  47. TRITACE [Concomitant]
     Active Substance: RAMIPRIL
     Indication: HYPERTENSION
     Route: 065
     Dates: start: 2013
  48. DIBONDRIN [Concomitant]
     Active Substance: DIPHENHYDRAMINE HYDROCHLORIDE
     Route: 065
     Dates: start: 20180305, end: 20180305
  49. FORTECORTIN [Concomitant]
     Active Substance: DEXAMETHASONE
     Dosage: SUPPORTIVE FOR CHEMOTHERAPY
     Route: 042
     Dates: start: 20180116, end: 20180116
  50. FORTECORTIN [Concomitant]
     Active Substance: DEXAMETHASONE
     Route: 042
     Dates: start: 20180508, end: 20180508
  51. ELOZELL SPEZIAL [Concomitant]
     Indication: HYPOKALAEMIA
     Route: 065
     Dates: start: 20180218, end: 20180218
  52. ALOXI [Concomitant]
     Active Substance: PALONOSETRON HYDROCHLORIDE
     Indication: PREMEDICATION
     Route: 065
     Dates: start: 20180305, end: 20180305
  53. PASPERTIN (AUSTRIA) [Concomitant]
     Route: 065
     Dates: start: 20180307, end: 20180312
  54. NEODOLPASSE [Concomitant]
     Route: 065
     Dates: start: 20180523, end: 20180525
  55. DIAMICRON [Concomitant]
     Active Substance: GLICLAZIDE
     Indication: TYPE 2 DIABETES MELLITUS
     Route: 065
     Dates: start: 20180117
  56. MONURIL [Concomitant]
     Active Substance: FOSFOMYCIN SODIUM
     Route: 065
     Dates: start: 20180225, end: 20180225
  57. FENISTIL (DIMETINDENE MALEATE) [Concomitant]
     Indication: RASH
     Route: 065
     Dates: start: 20180207, end: 20180209
  58. ULSAL [Concomitant]
     Active Substance: RANITIDINE HYDROCHLORIDE
     Route: 065
     Dates: start: 20180116, end: 20180116
  59. FORTECORTIN [Concomitant]
     Active Substance: DEXAMETHASONE
     Route: 042
     Dates: start: 20180327, end: 20180327
  60. ARANESP [Concomitant]
     Active Substance: DARBEPOETIN ALFA
     Indication: ANAEMIA
     Route: 065
     Dates: start: 20180215, end: 20180217
  61. EMEND [Concomitant]
     Active Substance: APREPITANT
     Route: 065
     Dates: start: 20180327, end: 20180329
  62. FURADANTIN RETARD [Concomitant]
     Indication: CYSTITIS
     Route: 065
     Dates: start: 20180326, end: 20180331
  63. NOVALGIN (METAMIZOLE SODIUM) [Concomitant]
     Active Substance: METAMIZOLE SODIUM
     Indication: BACK PAIN
     Route: 065
     Dates: start: 20180312, end: 20180312
  64. NEODOLPASSE [Concomitant]
     Indication: BACK PAIN
     Route: 065
     Dates: start: 20180312, end: 20180312
  65. CONCOR [Concomitant]
     Active Substance: BISOPROLOL FUMARATE
     Indication: HYPERTENSION
     Route: 065
     Dates: end: 201712
  66. AKYNZEO [Concomitant]
     Active Substance: NETUPITANT\PALONOSETRON HYDROCHLORIDE
     Route: 065
     Dates: start: 20180206, end: 20180206
  67. FERMED (SACCHARATED IRON OXIDE) [Concomitant]
     Route: 065
     Dates: start: 20180328, end: 20180328
  68. FERMED (SACCHARATED IRON OXIDE) [Concomitant]
     Route: 065
     Dates: start: 20180507, end: 20180507
  69. GUTTALAX [Concomitant]
     Indication: CONSTIPATION
     Route: 065
     Dates: start: 20180117
  70. ARANESP [Concomitant]
     Active Substance: DARBEPOETIN ALFA
     Route: 065
     Dates: start: 20180507, end: 20180508
  71. ZARZIO [Concomitant]
     Active Substance: FILGRASTIM
     Route: 065
     Dates: start: 20180503, end: 20180504
  72. PASPERTIN (AUSTRIA) [Concomitant]
     Indication: PREMEDICATION
     Route: 065
     Dates: start: 20180305, end: 20180305
  73. XYZALL [Concomitant]
     Active Substance: LEVOCETIRIZINE DIHYDROCHLORIDE
     Indication: RASH
     Route: 065
     Dates: start: 20180327
  74. ELOCON [Concomitant]
     Active Substance: MOMETASONE FUROATE
     Indication: RASH
     Route: 061
     Dates: start: 20180418, end: 20180420

REACTIONS (1)
  - Epilepsy [Not Recovered/Not Resolved]

NARRATIVE: CASE EVENT DATE: 20180121
